FAERS Safety Report 4391836-4 (Version None)
Quarter: 2004Q3

REPORT INFORMATION
  Report Type: 
  Country: None (occurrence: None)
  Receive Date: 20040702
  Receipt Date: 20040419
  Transmission Date: 20050211
  Serious: Yes (Hospitalization)
  Sender: FDA-Public Use
  Company Number: 2004UW08021

PATIENT
  Age: 74 Year
  Sex: Female

DRUGS (14)
  1. CRESTOR [Suspect]
     Indication: LOW DENSITY LIPOPROTEIN INCREASED
     Dosage: 10 MG DAILY PO
     Route: 048
     Dates: start: 20040226, end: 20040408
  2. GLUCOVANCE [Suspect]
     Dosage: 5/500 MG TID
  3. LASIX [Suspect]
     Dosage: 20 MG BID PO
     Route: 048
  4. ATACAND [Suspect]
     Dosage: 32 MG QD PO
     Route: 048
  5. LOTREL [Suspect]
     Dosage: 10/20 QD
  6. PLENDIL [Suspect]
     Dosage: 5 QD
  7. ZAROXOLYN [Suspect]
     Dosage: 5 QD
  8. STARLIX [Suspect]
     Dosage: 120 TID
  9. DIGITEK [Concomitant]
  10. VITAMIN B-12 [Concomitant]
  11. IRON SLOW FE [Concomitant]
  12. LIPITOR [Concomitant]
  13. POTASSIUM [Concomitant]
  14. ASPIRIN [Concomitant]

REACTIONS (2)
  - RENAL FAILURE ACUTE [None]
  - RHABDOMYOLYSIS [None]
